FAERS Safety Report 16566109 (Version 1)
Quarter: 2019Q3

REPORT INFORMATION
  Report Type: Spontaneous
  Country: ES (occurrence: ES)
  Receive Date: 20190712
  Receipt Date: 20190712
  Transmission Date: 20191004
  Serious: Yes (Hospitalization, Other)
  Sender: FDA-Public Use
  Company Number: ES-PTC THERAPEUTICS, INC.-ES-2019PTC001149

PATIENT

DRUGS (3)
  1. IMMUNOGLOBULIN                     /00025201/ [Suspect]
     Active Substance: HUMAN IMMUNOGLOBULIN G
     Indication: CHRONIC INFLAMMATORY DEMYELINATING POLYRADICULONEUROPATHY
     Dosage: 0.5G/KG/DAY ADMINISTERED OVER 12H/DAY FOR 4 DAYS EVERY MONTH
     Route: 042
  2. DEFLAZACORT [Suspect]
     Active Substance: DEFLAZACORT
     Indication: CHRONIC INFLAMMATORY DEMYELINATING POLYRADICULONEUROPATHY
     Dosage: 6 MG, QD
     Route: 065
  3. AZATHIOPRINE. [Suspect]
     Active Substance: AZATHIOPRINE
     Indication: CHRONIC INFLAMMATORY DEMYELINATING POLYRADICULONEUROPATHY
     Dosage: UNK, UNK, UNK
     Route: 065

REACTIONS (3)
  - Vena cava thrombosis [Recovered/Resolved]
  - Drug interaction [Recovered/Resolved]
  - Superior vena cava syndrome [Recovering/Resolving]
